FAERS Safety Report 6159292-3 (Version None)
Quarter: 2009Q2

REPORT INFORMATION
  Report Type: 
  Country: None (occurrence: None)
  Receive Date: 20090414
  Receipt Date: 20090403
  Transmission Date: 20091009
  Serious: Yes (Life-Threatening, Hospitalization)
  Sender: FDA-Public Use
  Company Number: 2009-193634-NL

PATIENT
  Age: 31 Year
  Sex: Female

DRUGS (2)
  1. MARVELON [Suspect]
     Indication: CONTRACEPTION
     Dosage: 1 DF ORAL
     Route: 048
     Dates: start: 20060801, end: 20060901
  2. MARVELON [Suspect]
     Indication: CONTRACEPTION
     Dosage: 1 DF ORAL
     Route: 048
     Dates: start: 20090201, end: 20090201

REACTIONS (7)
  - ARTERIOVENOUS FISTULA [None]
  - BLOOD HUMAN CHORIONIC GONADOTROPIN ABNORMAL [None]
  - DRUG EXPOSURE DURING PREGNANCY [None]
  - ENDOMETRIAL DISORDER [None]
  - PREGNANCY [None]
  - TREATMENT NONCOMPLIANCE [None]
  - UTERINE HAEMORRHAGE [None]
